FAERS Safety Report 12454125 (Version 1)
Quarter: 2016Q2

REPORT INFORMATION
  Report Type: Spontaneous
  Country: US (occurrence: US)
  Receive Date: 20160610
  Receipt Date: 20160610
  Transmission Date: 20160815
  Serious: Yes (Other)
  Sender: FDA-Public Use
  Company Number: US-TEVA-653105USA

PATIENT
  Sex: Female

DRUGS (1)
  1. ENOXAPARIN [Suspect]
     Active Substance: ENOXAPARIN

REACTIONS (3)
  - Pulmonary embolism [Unknown]
  - Thrombosis [Unknown]
  - Injection site atrophy [Unknown]

NARRATIVE: CASE EVENT DATE: 2016
